FAERS Safety Report 18771397 (Version 1)
Quarter: 2021Q1

REPORT INFORMATION
  Report Type: Spontaneous
  Country: KR (occurrence: KR)
  Receive Date: 20210121
  Receipt Date: 20210121
  Transmission Date: 20210419
  Serious: Yes (Other)
  Sender: FDA-Public Use
  Company Number: KR-BAYER-2020-234359

PATIENT
  Sex: Female

DRUGS (1)
  1. YAZ [Suspect]
     Active Substance: DROSPIRENONE\ETHINYL ESTRADIOL
     Indication: DYSMENORRHOEA
     Route: 048

REACTIONS (11)
  - Back pain [None]
  - Illness [None]
  - Off label use [None]
  - Loss of consciousness [None]
  - Vomiting [None]
  - Nausea [None]
  - Headache [None]
  - Dysmenorrhoea [None]
  - Abdominal distension [None]
  - Arthralgia [None]
  - Drug ineffective for unapproved indication [None]
